FAERS Safety Report 5582974-9 (Version None)
Quarter: 2007Q4

REPORT INFORMATION
  Report Type: 
  Country: None (occurrence: None)
  Receive Date: 20071231
  Receipt Date: 20071220
  Transmission Date: 20080405
  Serious: Yes (Death, Hospitalization, Other)
  Sender: FDA-Public Use
  Company Number: 18030

PATIENT
  Age: 17 Year
  Sex: Male

DRUGS (6)
  1. METHOTREXATE [Suspect]
     Indication: ACUTE LYMPHOCYTIC LEUKAEMIA
  2. VINCRISTINE [Suspect]
     Indication: ACUTE LYMPHOCYTIC LEUKAEMIA
  3. DAUNORUBICIN HCL [Suspect]
     Indication: ACUTE LYMPHOCYTIC LEUKAEMIA
  4. ASPARAGINASE [Suspect]
     Indication: ACUTE LYMPHOCYTIC LEUKAEMIA
  5. DEXAMETHASONE TAB [Suspect]
     Indication: ACUTE LYMPHOCYTIC LEUKAEMIA
  6. PREDNISONE TAB [Suspect]
     Indication: ACUTE LYMPHOCYTIC LEUKAEMIA

REACTIONS (19)
  - ABDOMINAL PAIN [None]
  - ACUTE RESPIRATORY DISTRESS SYNDROME [None]
  - ANAEMIA [None]
  - ASPERGILLOSIS [None]
  - BLOOD CULTURE POSITIVE [None]
  - BONE MARROW FAILURE [None]
  - BRONCHIAL ULCERATION [None]
  - DISEASE PROGRESSION [None]
  - FEBRILE NEUTROPENIA [None]
  - FUNGAL INFECTION [None]
  - IMMUNOSUPPRESSION [None]
  - LUNG INFECTION [None]
  - MUCOSAL INFLAMMATION [None]
  - MYALGIA [None]
  - PAIN OF SKIN [None]
  - PULMONARY CAVITATION [None]
  - RASH PAPULAR [None]
  - SKIN LESION [None]
  - STAPHYLOCOCCAL INFECTION [None]
